FAERS Safety Report 8645147 (Version 3)
Quarter: 2013Q3

REPORT INFORMATION
  Report Type: Report from Study
  Country: CA (occurrence: CA)
  Receive Date: 20120702
  Receipt Date: 20130916
  Transmission Date: 20140515
  Serious: Yes (Death, Other)
  Sender: FDA-Public Use
  Company Number: PHHY2012CA053927

PATIENT
  Sex: Female

DRUGS (3)
  1. ACLASTA [Suspect]
     Indication: OSTEOPOROSIS
     Dosage: UNK
     Route: 042
     Dates: start: 20110819
  2. ACLASTA [Suspect]
     Dosage: UNK
     Route: 042
     Dates: start: 20121205
  3. ANTIARRHYTHMIC AGENTS [Concomitant]
     Dosage: UNK

REACTIONS (4)
  - Streptococcus test positive [Fatal]
  - Cachexia [Fatal]
  - Thrombosis [Recovering/Resolving]
  - Oesophagitis [Recovering/Resolving]
